FAERS Safety Report 13513423 (Version 2)
Quarter: 2017Q2

REPORT INFORMATION
  Report Type: Spontaneous
  Country: US (occurrence: US)
  Receive Date: 20170504
  Receipt Date: 20170505
  Transmission Date: 20170830
  Serious: Yes (Other)
  Sender: FDA-Public Use
  Company Number: US-ROCHE-1926517

PATIENT
  Age: 27 Year
  Sex: Female
  Weight: 98.06 kg

DRUGS (2)
  1. RITUXAN [Suspect]
     Active Substance: RITUXIMAB
     Indication: MULTIPLE SCLEROSIS
     Dosage: LAST RITUXIMAB INFUSION WAS RECEIVED ON 21/APR/2017.
     Route: 042
     Dates: start: 20161118
  2. RITUXAN [Suspect]
     Active Substance: RITUXIMAB
     Dosage: LAST RITUXIMAB INFUSION WAS RECEIVED ON 21/APR/2017.
     Route: 042
     Dates: start: 20160519

REACTIONS (3)
  - Maternal exposure during pregnancy [Unknown]
  - Off label use [Unknown]
  - Abortion spontaneous [Unknown]

NARRATIVE: CASE EVENT DATE: 20161229
